FAERS Safety Report 6251566-0 (Version None)
Quarter: 2009Q2

REPORT INFORMATION
  Report Type: 
  Country: None (occurrence: None)
  Receive Date: 20090630
  Receipt Date: 20090625
  Transmission Date: 20091009
  Serious: No
  Sender: FDA-Public Use
  Company Number: US-B.I. PHARMACEUTICALS,INC./RIDGEFIELD-2009-BP-07404BP

PATIENT
  Sex: Female
  Weight: 50.4 kg

DRUGS (11)
  1. MIRAPEX [Suspect]
     Indication: RESTLESS LEGS SYNDROME
     Dosage: 0.125 MG
     Dates: start: 20090603
  2. MIRAPEX [Suspect]
     Dosage: 0.25 MG
     Dates: end: 20090617
  3. SPIRIVA [Concomitant]
     Dosage: 18 MCG
  4. PREDNISONE TAB [Concomitant]
     Dosage: 20 MG
  5. PROZAC [Concomitant]
     Dosage: 40 MG
  6. LEVOXYL [Concomitant]
     Dosage: 50 MCG
  7. CADUET [Concomitant]
  8. PROVENTIL-HFA [Concomitant]
     Route: 055
  9. XANAX [Concomitant]
  10. HYDROCODONE BITARTRATE [Concomitant]
     Indication: ARTHRALGIA
  11. AMBIEN [Concomitant]

REACTIONS (5)
  - ARTHRALGIA [None]
  - JOINT SWELLING [None]
  - RASH [None]
  - RASH ERYTHEMATOUS [None]
  - RASH MACULAR [None]
